FAERS Safety Report 22074044 (Version 1)
Quarter: 2023Q1

REPORT INFORMATION
  Report Type: Spontaneous
  Country: US (occurrence: US)
  Receive Date: 20230308
  Receipt Date: 20230308
  Transmission Date: 20230418
  Serious: No
  Sender: FDA-Public Use
  Company Number: US-009507513-2302USA003688

PATIENT

DRUGS (2)
  1. KEYTRUDA [Suspect]
     Active Substance: PEMBROLIZUMAB
     Indication: Renal cell carcinoma
     Dosage: UNK
  2. INLYTA [Suspect]
     Active Substance: AXITINIB
     Indication: Renal cell carcinoma
     Dosage: 1 MILLIGRAM

REACTIONS (1)
  - Proteinuria [Unknown]
